FAERS Safety Report 9780636 (Version 1)
Quarter: 2013Q4

REPORT INFORMATION
  Report Type: Spontaneous
  Country: IT (occurrence: IT)
  Receive Date: 20131224
  Receipt Date: 20131224
  Transmission Date: 20140711
  Serious: Yes (Hospitalization, Disabling)
  Sender: FDA-Public Use
  Company Number: IT-JNJFOC-20131209627

PATIENT
  Age: 40 Year
  Sex: Male

DRUGS (3)
  1. INVEGA [Suspect]
     Indication: PRODUCT USED FOR UNKNOWN INDICATION
     Route: 048
  2. FLUOROURACIL [Concomitant]
     Indication: CHEMOTHERAPY
     Route: 065
  3. OXALIPLATIN [Concomitant]
     Indication: CHEMOTHERAPY
     Route: 065

REACTIONS (1)
  - Gastric cancer [Recovered/Resolved with Sequelae]
